FAERS Safety Report 19081968 (Version 2)
Quarter: 2021Q2

REPORT INFORMATION
  Report Type: Report from Study
  Country: BR (occurrence: BR)
  Receive Date: 20210401
  Receipt Date: 20210416
  Transmission Date: 20210717
  Serious: Yes (Other)
  Sender: FDA-Public Use
  Company Number: NVSC2021BR070893

PATIENT
  Age: 58 Year
  Sex: Female
  Weight: 61 kg

DRUGS (9)
  1. AZOPT [Concomitant]
     Active Substance: BRINZOLAMIDE
     Indication: GLAUCOMA
     Dosage: SOLUTION, 5 MG?A DROP IN EACH EYE, IN THE MORNING AND AFTERNOON (8 OR 10 YEARS AGO)
     Route: 047
     Dates: end: 202003
  2. DORZOL [Concomitant]
     Indication: GLAUCOMA
     Dosage: SOLUTION?A DROP IN EACH EYE
     Route: 047
     Dates: start: 202003, end: 202102
  3. TRAVATAN [Suspect]
     Active Substance: TRAVOPROST
     Dosage: SOLUTION? A DROP IN EACH EYE, AT NIGHT
     Route: 047
  4. ALPHAGAN P [Concomitant]
     Active Substance: BRIMONIDINE TARTRATE
     Indication: GLAUCOMA
     Dosage: SOLUTION, 7.8 MG? A DROP IN EACH EYE, IN THE MORNING AND AFTERNOON (8 OR 10 YEARS AGO)
     Route: 047
  5. TIMOLOL. [Concomitant]
     Active Substance: TIMOLOL
     Indication: GLAUCOMA
     Dosage: SOLUTION, 0.5 MG, IN THE MORNING AND AFTERNOON (8 OR 10 YEARS AGO)
     Route: 047
     Dates: end: 202003
  6. LUMIGAN [Concomitant]
     Active Substance: BIMATOPROST
     Indication: GLAUCOMA
     Dosage: SOLUTION, 0.3 %, ONE DROP AT NIGHT (8 OR 10 YEARS AGO)
     Route: 047
  7. AZORGA [Suspect]
     Active Substance: BRINZOLAMIDE\TIMOLOL MALEATE
     Dosage: UNK
     Route: 047
  8. TRAVATAN [Suspect]
     Active Substance: TRAVOPROST
     Indication: GLAUCOMA
     Dosage: UNK, ABOUT 6 OR 5 YEARS
     Route: 065
  9. AZORGA [Suspect]
     Active Substance: BRINZOLAMIDE\TIMOLOL MALEATE
     Indication: GLAUCOMA
     Dosage: UNK, DROP IN THE MORNING AND IN THE NIGHT
     Route: 047
     Dates: start: 202102

REACTIONS (11)
  - Panic attack [Recovering/Resolving]
  - Depression [Recovering/Resolving]
  - Labyrinthitis [Recovering/Resolving]
  - Malaise [Recovering/Resolving]
  - Cough [Recovering/Resolving]
  - Tinnitus [Recovering/Resolving]
  - Breath odour [Recovering/Resolving]
  - Arrhythmia [Recovered/Resolved]
  - Feeling abnormal [Recovering/Resolving]
  - Condition aggravated [Recovering/Resolving]
  - Tachycardia [Recovering/Resolving]

NARRATIVE: CASE EVENT DATE: 202102
